FAERS Safety Report 7319808-8 (Version None)
Quarter: 2011Q1

REPORT INFORMATION
  Report Type: 
  Country: None (occurrence: None)
  Receive Date: 20110228
  Receipt Date: 20101001
  Transmission Date: 20110831
  Serious: No
  Sender: FDA-Public Use
  Company Number: A0884498A

PATIENT
  Age: 52 Year
  Sex: Female

DRUGS (6)
  1. LAMICTAL [Suspect]
     Indication: BIPOLAR DISORDER
     Dosage: 100MG PER DAY
     Route: 048
     Dates: start: 20100701, end: 20100901
  2. KLONOPIN [Concomitant]
  3. WELLBUTRIN [Concomitant]
  4. NEURONTIN [Concomitant]
  5. VIVELLE [Concomitant]
  6. MULTIVITAMIN [Concomitant]

REACTIONS (2)
  - RASH ERYTHEMATOUS [None]
  - RASH PAPULAR [None]
